FAERS Safety Report 21519741 (Version 1)
Quarter: 2022Q4

REPORT INFORMATION
  Report Type: Spontaneous
  Country: FR (occurrence: FR)
  Receive Date: 20221028
  Receipt Date: 20221028
  Transmission Date: 20230113
  Serious: Yes (Hospitalization)
  Sender: FDA-Public Use
  Company Number: None

PATIENT
  Age: 51 Year
  Sex: Male

DRUGS (3)
  1. SKENAN [Suspect]
     Active Substance: MORPHINE SULFATE
     Dosage: 400MG/J
     Route: 042
  2. BUPRENORPHINE [Suspect]
     Active Substance: BUPRENORPHINE
  3. COCAINE [Suspect]
     Active Substance: COCAINE
     Route: 055

REACTIONS (3)
  - Drug dependence [Recovering/Resolving]
  - Intentional product use issue [Unknown]
  - Intentional product misuse [Unknown]
